FAERS Safety Report 5032550-1 (Version None)
Quarter: 2006Q2

REPORT INFORMATION
  Report Type: 
  Country: None (occurrence: None)
  Receive Date: 20060620
  Receipt Date: 20060609
  Transmission Date: 20061013
  Serious: Yes (Hospitalization)
  Sender: FDA-Public Use
  Company Number: HQWYE218008MAR06

PATIENT
  Age: 67 Year
  Sex: Male
  Weight: 111.4 kg

DRUGS (4)
  1. RAPAMUNE [Suspect]
     Indication: PROPHYLAXIS AGAINST TRANSPLANT REJECTION
     Dosage: ORAL
     Route: 048
     Dates: start: 20050310, end: 20050406
  2. ZENAPAX [Concomitant]
  3. MYCOPHENOLATE MOFETIL [Concomitant]
  4. CORTICOSTEROID NOS                (CORTICOSTEROID NOS) [Concomitant]

REACTIONS (3)
  - DECUBITUS ULCER [None]
  - OSTEOMYELITIS [None]
  - PANCYTOPENIA [None]
